FAERS Safety Report 5047633-X (Version None)
Quarter: 2006Q3

REPORT INFORMATION
  Report Type: 
  Country: None (occurrence: None)
  Receive Date: 20060705
  Receipt Date: 20060705
  Transmission Date: 20061208
  Serious: Yes (Life-Threatening, Other)
  Sender: FDA-Public Use
  Company Number: None

PATIENT
  Sex: Male
  Weight: 117.9352 kg

DRUGS (1)
  1. AMBIEN [Suspect]
     Indication: INSOMNIA
     Dosage: 10 MG NIGHTLY PO
     Route: 048
     Dates: start: 20020131, end: 20050703

REACTIONS (6)
  - AGITATION [None]
  - DRUG INEFFECTIVE [None]
  - PHARMACEUTICAL PRODUCT COMPLAINT [None]
  - PHARMACEUTICAL PRODUCT COUNTERFEIT [None]
  - POOR QUALITY DRUG ADMINISTERED [None]
  - RESTLESSNESS [None]
